FAERS Safety Report 10643347 (Version 2)
Quarter: 2015Q2

REPORT INFORMATION
  Report Type: Report from Study
  Country: US (occurrence: None)
  Receive Date: 20141128
  Receipt Date: 20150427
  Transmission Date: 20150821
  Serious: Yes (Hospitalization)
  Sender: FDA-Public Use
  Company Number: 1224850-2014-00010

PATIENT
  Age: 65 Year
  Sex: Female
  Weight: 97.5 kg

DRUGS (19)
  1. PHOSLO [Suspect]
     Active Substance: CALCIUM ACETATE
     Indication: HYPOCALCAEMIA
     Dosage: 1 CAPSULE , TID, PO
     Route: 048
     Dates: start: 20130701
  2. AMLODIPINE [Concomitant]
     Active Substance: AMLODIPINE BESYLATE
  3. IMODIUM (LOPERAMIDE HYDROCHLORIDE) [Concomitant]
  4. LISINIOPRIL [Concomitant]
  5. ALBUTEROL (SALBUTRAMOL) [Concomitant]
  6. CELECOXIB; IBUPROFEN; NAPROXEN; PLACEBO [Concomitant]
     Active Substance: CELECOXIB\IBUPROFEN\NAPROXEN\PLACEBO
  7. FLUOXETINE [Concomitant]
     Active Substance: FLUOXETINE\FLUOXETINE HYDROCHLORIDE
  8. FLONASE [Concomitant]
     Active Substance: FLUTICASONE PROPIONATE
  9. LIBERTY DIALYSIS TUBING [Concomitant]
  10. METFORMIN [Concomitant]
     Active Substance: METFORMIN HYDROCHLORIDE
  11. RANITIDINE [Concomitant]
     Active Substance: RANITIDINE\RANITIDINE HYDROCHLORIDE
  12. DIPHENHYDRAMINE [Concomitant]
     Active Substance: DIPHENHYDRAMINE
  13. TRAMADOL [Concomitant]
     Active Substance: TRAMADOL
  14. VITAMIN D (COLECALCIFEROL) [Concomitant]
  15. AZELASTINE [Concomitant]
     Active Substance: AZELASTINE
  16. ALPRAZOLAM. [Concomitant]
     Active Substance: ALPRAZOLAM
  17. LIBERTY DIALYSIS CYCLER [Concomitant]
  18. MONTELUKAST [Concomitant]
     Active Substance: MONTELUKAST SODIUM
  19. ASPIRIN (ACETYLSALICYCLIC ACID) [Concomitant]
     Active Substance: ASPIRIN

REACTIONS (1)
  - Hypercalcaemia [None]

NARRATIVE: CASE EVENT DATE: 20140905
